FAERS Safety Report 10450031 (Version 2)
Quarter: 2014Q3

REPORT INFORMATION
  Report Type: Spontaneous
  Country: GB (occurrence: GB)
  Receive Date: 20140912
  Receipt Date: 20140918
  Transmission Date: 20150326
  Serious: Yes (Hospitalization)
  Sender: FDA-Public Use
  Company Number: GB-JNJFOC-20140903192

PATIENT
  Sex: Female

DRUGS (4)
  1. PARACETAMOL [Suspect]
     Active Substance: ACETAMINOPHEN
     Route: 065
  2. ANTI-DEPRESSANT (NOS) [Suspect]
     Active Substance: UNSPECIFIED INGREDIENT
     Indication: SELF INJURIOUS BEHAVIOUR
     Route: 065
  3. PARACETAMOL [Suspect]
     Active Substance: ACETAMINOPHEN
     Indication: SELF INJURIOUS BEHAVIOUR
     Route: 065
  4. SEDATIVES NOS [Suspect]
     Active Substance: UNSPECIFIED INGREDIENT
     Indication: SELF INJURIOUS BEHAVIOUR
     Route: 065

REACTIONS (1)
  - Intentional overdose [Unknown]
